FAERS Safety Report 7366549-7 (Version None)
Quarter: 2011Q1

REPORT INFORMATION
  Report Type: 
  Country: None (occurrence: None)
  Receive Date: 20110322
  Receipt Date: 20110315
  Transmission Date: 20110831
  Serious: Yes (Hospitalization)
  Sender: FDA-Public Use
  Company Number: FR-KINGPHARMUSA00001-K201100272

PATIENT
  Age: 44 Year
  Sex: Male

DRUGS (3)
  1. ALTACE [Suspect]
     Dosage: UNK
     Route: 048
     Dates: start: 20100918, end: 20100918
  2. PAROXETINE HCL [Suspect]
     Indication: ABNORMAL BEHAVIOUR
     Dosage: 20 MG, SINGLE
     Route: 048
     Dates: start: 20100918, end: 20100918
  3. CHLORPROMAZINE [Suspect]
     Indication: ABNORMAL BEHAVIOUR
     Dosage: UNK
     Route: 048
     Dates: start: 20100918, end: 20100918

REACTIONS (5)
  - DRUG ABUSE [None]
  - CONTUSION [None]
  - HEAD INJURY [None]
  - ATRIAL FIBRILLATION [None]
  - LACERATION [None]
